FAERS Safety Report 7654988-6 (Version None)
Quarter: 2011Q3

REPORT INFORMATION
  Report Type: 
  Country: None (occurrence: None)
  Receive Date: 20110804
  Receipt Date: 20110804
  Transmission Date: 20111222
  Serious: Yes (Hospitalization)
  Sender: FDA-Public Use
  Company Number: PHHO2007DE19354

PATIENT
  Sex: Male
  Weight: 90 kg

DRUGS (3)
  1. ACETYLCYSTEINE [Suspect]
  2. CYCLOSPORINE [Suspect]
     Indication: CORNEAL OPERATION
     Dosage: 300 MG, QD
     Route: 048
     Dates: start: 20060308
  3. PLACEBO [Suspect]
     Indication: CORNEAL TRANSPLANT
     Route: 042
     Dates: start: 20060308, end: 20060705

REACTIONS (1)
  - CORNEAL EROSION [None]
